FAERS Safety Report 21652500 (Version 1)
Quarter: 2022Q4

REPORT INFORMATION
  Report Type: Spontaneous
  Country: JP (occurrence: JP)
  Receive Date: 20221128
  Receipt Date: 20221128
  Transmission Date: 20230112
  Serious: Yes (Hospitalization, Other)
  Sender: FDA-Public Use
  Company Number: JP-PFIZER INC-202200708941

PATIENT
  Age: 58 Year
  Sex: Male

DRUGS (6)
  1. LEVOFLOXACIN [Suspect]
     Active Substance: LEVOFLOXACIN
     Indication: Renal cyst infection
     Dosage: 500 MILLIGRAM, 500 MG PER HEMODIALYSIS AT DAY 6
     Route: 042
     Dates: start: 2019
  2. LEVOFLOXACIN [Suspect]
     Active Substance: LEVOFLOXACIN
     Indication: Escherichia infection
  3. MEROPENEM [Suspect]
     Active Substance: MEROPENEM
     Indication: Renal cyst infection
     Dosage: 0.5 GRAM, QD, 0.5 G, DAILY AT DAY 13
     Route: 065
     Dates: start: 2019, end: 2019
  4. MEROPENEM [Suspect]
     Active Substance: MEROPENEM
     Indication: Escherichia infection
  5. CEFMETAZOLE [Suspect]
     Active Substance: CEFMETAZOLE
     Indication: Renal cyst infection
     Dosage: 1 GRAM, QD
     Route: 042
  6. CEFMETAZOLE [Suspect]
     Active Substance: CEFMETAZOLE
     Indication: Escherichia infection

REACTIONS (1)
  - Drug ineffective [Unknown]

NARRATIVE: CASE EVENT DATE: 20190101
